FAERS Safety Report 17471189 (Version 4)
Quarter: 2025Q2

REPORT INFORMATION
  Report Type: Spontaneous
  Country: US (occurrence: US)
  Receive Date: 20200228
  Receipt Date: 20250602
  Transmission Date: 20250716
  Serious: Yes (Death, Other)
  Sender: ROCHE
  Company Number: US-ROCHE-2557411

PATIENT
  Age: 86 Year
  Sex: Male
  Weight: 72.0 kg

DRUGS (3)
  1. ESBRIET [Suspect]
     Active Substance: PIRFENIDONE
     Indication: Idiopathic pulmonary fibrosis
     Route: 048
     Dates: start: 20180205
  2. ESBRIET [Suspect]
     Active Substance: PIRFENIDONE
     Dosage: 2 TABLETS 3 TIMES A DAY
     Route: 065
  3. TAMIFLU [Concomitant]
     Active Substance: OSELTAMIVIR PHOSPHATE
     Indication: Influenza
     Route: 048
     Dates: start: 20200130, end: 20200202

REACTIONS (7)
  - Gastrointestinal basidiobolomycosis [Fatal]
  - Cardiac failure congestive [Fatal]
  - Sepsis [Fatal]
  - Atrial fibrillation [Unknown]
  - Head and neck cancer [Unknown]
  - Abdominal discomfort [Unknown]
  - Chronic left ventricular failure [Unknown]

NARRATIVE: CASE EVENT DATE: 20181001
